FAERS Safety Report 6898572-0 (Version None)
Quarter: 2010Q3

REPORT INFORMATION
  Report Type: 
  Country: None (occurrence: None)
  Receive Date: 20100802
  Receipt Date: 20071102
  Transmission Date: 20110219
  Serious: Yes (Other)
  Sender: FDA-Public Use
  Company Number: US-PFIZER INC-2007093283

PATIENT
  Sex: Male
  Weight: 75.8 kg

DRUGS (5)
  1. LYRICA [Suspect]
     Indication: NERVE INJURY
     Dates: start: 20060101
  2. CELEBREX [Concomitant]
  3. DARVOCET [Concomitant]
  4. CYMBALTA [Concomitant]
  5. ZOCOR [Concomitant]
     Indication: BLOOD CHOLESTEROL

REACTIONS (6)
  - CONDITION AGGRAVATED [None]
  - DISTURBANCE IN ATTENTION [None]
  - DIZZINESS [None]
  - FEELING ABNORMAL [None]
  - VISION BLURRED [None]
  - WEIGHT INCREASED [None]
